FAERS Safety Report 24954804 (Version 1)
Quarter: 2025Q1

REPORT INFORMATION
  Report Type: Spontaneous
  Country: US (occurrence: None)
  Receive Date: 20250210
  Receipt Date: 20250210
  Transmission Date: 20250409
  Serious: Yes (Hospitalization)
  Sender: FDA-CTU
  Company Number: None

PATIENT
  Age: 72 Year
  Sex: Male
  Weight: 75.6 kg

DRUGS (2)
  1. ABECMA [Suspect]
     Active Substance: IDECABTAGENE VICLEUCEL
     Indication: Plasma cell myeloma
     Route: 042
     Dates: start: 20240528, end: 20240528
  2. TOCILIZUMAB [Concomitant]
     Active Substance: TOCILIZUMAB

REACTIONS (6)
  - Pyrexia [None]
  - Hypotension [None]
  - Nausea [None]
  - Vomiting [None]
  - Cytokine release syndrome [None]
  - Oxygen saturation decreased [None]

NARRATIVE: CASE EVENT DATE: 20240528
